FAERS Safety Report 9960582 (Version 1)
Quarter: 2014Q1

REPORT INFORMATION
  Report Type: Report from Study
  Country: US (occurrence: US)
  Receive Date: 20140305
  Receipt Date: 20140305
  Transmission Date: 20141002
  Serious: No
  Sender: FDA-Public Use
  Company Number: US-ABBVIE-13P-163-1107527-00

PATIENT
  Age: 49 Year
  Sex: Female
  Weight: 98.52 kg

DRUGS (1)
  1. HUMIRA [Suspect]
     Indication: ANKYLOSING SPONDYLITIS
     Dates: start: 20130403, end: 20130529

REACTIONS (2)
  - Sensory disturbance [Recovering/Resolving]
  - Nerve compression [Not Recovered/Not Resolved]
